FAERS Safety Report 16750614 (Version 2)
Quarter: 2019Q3

REPORT INFORMATION
  Report Type: Report from Study
  Country: FR (occurrence: FR)
  Receive Date: 20190828
  Receipt Date: 20190904
  Transmission Date: 20191005
  Serious: Yes (Life-Threatening)
  Sender: FDA-Public Use
  Company Number: PHHO2019FR008591

PATIENT
  Age: 66 Year
  Sex: Female
  Weight: 94 kg

DRUGS (3)
  1. CGP 41251 [Suspect]
     Active Substance: MIDOSTAURIN
     Indication: ACUTE MYELOID LEUKAEMIA
     Dosage: 50 MG, BID
     Route: 048
     Dates: start: 20190313
  2. IDARUBICIN COMP_IDA+ [Suspect]
     Active Substance: IDARUBICIN
     Indication: ACUTE MYELOID LEUKAEMIA
     Dosage: 23 MG/M2, QD
     Route: 042
     Dates: start: 20190306
  3. CYTARABINE. [Suspect]
     Active Substance: CYTARABINE
     Indication: ACUTE MYELOID LEUKAEMIA
     Dosage: 378 MG/M2, QD
     Route: 042
     Dates: start: 20190306

REACTIONS (1)
  - Staphylococcal sepsis [Recovered/Resolved]

NARRATIVE: CASE EVENT DATE: 20190317
